FAERS Safety Report 14573663 (Version 1)
Quarter: 2018Q1

REPORT INFORMATION
  Report Type: Spontaneous
  Country: AU (occurrence: AU)
  Receive Date: 20180226
  Receipt Date: 20180226
  Transmission Date: 20180509
  Serious: Yes (Other)
  Sender: FDA-Public Use
  Company Number: AU-PFIZER INC-2018032922

PATIENT
  Age: 68 Year
  Sex: Male

DRUGS (7)
  1. MG /07507001/ [Concomitant]
     Dosage: UNK
  2. VIAGRA [Suspect]
     Active Substance: SILDENAFIL CITRATE
     Dosage: 100 MG, UNK
  3. VITAMIN C [Concomitant]
     Active Substance: ASCORBIC ACID
     Dosage: UNK
  4. FISH OIL [Concomitant]
     Active Substance: FISH OIL
     Dosage: UNK
  5. KRILL OIL [Concomitant]
     Active Substance: DIETARY SUPPLEMENT
     Dosage: UNK
  6. VITAMIN D [Concomitant]
     Active Substance: CHOLECALCIFEROL
     Dosage: UNK
  7. ZINC. [Concomitant]
     Active Substance: ZINC
     Dosage: UNK

REACTIONS (8)
  - Drug ineffective [Unknown]
  - Headache [Not Recovered/Not Resolved]
  - Dizziness [Not Recovered/Not Resolved]
  - Fatigue [Not Recovered/Not Resolved]
  - Nasal congestion [Not Recovered/Not Resolved]
  - Coronary artery bypass [Unknown]
  - Arthritis [Unknown]
  - Back disorder [Unknown]

NARRATIVE: CASE EVENT DATE: 2013
